FAERS Safety Report 5098421-X (Version None)
Quarter: 2006Q3

REPORT INFORMATION
  Report Type: 
  Country: None (occurrence: None)
  Receive Date: 20060907
  Receipt Date: 20060831
  Transmission Date: 20061208
  Serious: Yes (Other)
  Sender: FDA-Public Use
  Company Number: PHEH2006US11224

PATIENT
  Sex: Male

DRUGS (1)
  1. LAMISIL [Suspect]
     Route: 048

REACTIONS (1)
  - TOURETTE'S DISORDER [None]
